FAERS Safety Report 13613192 (Version 1)
Quarter: 2017Q2

REPORT INFORMATION
  Report Type: Spontaneous
  Country: IT (occurrence: IT)
  Receive Date: 20170605
  Receipt Date: 20170605
  Transmission Date: 20170830
  Serious: Yes (Other)
  Sender: FDA-Public Use
  Company Number: PHHY2017IT079770

PATIENT

DRUGS (7)
  1. PACLITAXEL. [Suspect]
     Active Substance: PACLITAXEL
     Indication: METASTASES TO UTERUS
  2. CARBOPLATINUM [Suspect]
     Active Substance: CARBOPLATIN
     Indication: METASTASES TO OVARY
     Route: 065
  3. CAELYX [Suspect]
     Active Substance: DOXORUBICIN HYDROCHLORIDE
     Indication: METASTASES TO OVARY
     Route: 065
  4. PACLITAXEL. [Suspect]
     Active Substance: PACLITAXEL
     Indication: METASTASES TO OVARY
     Route: 065
  5. CARBOPLATINUM [Suspect]
     Active Substance: CARBOPLATIN
     Indication: METASTASES TO UTERUS
  6. CAELYX [Suspect]
     Active Substance: DOXORUBICIN HYDROCHLORIDE
     Indication: METASTASES TO UTERUS
  7. POLYETHYLENE GLYCOL [Concomitant]
     Active Substance: POLYETHYLENE GLYCOLS
     Indication: BOWEL PREPARATION
     Dosage: 1000 MG? 2 IN 2 L OF WATER
     Route: 065

REACTIONS (1)
  - Gastrointestinal erosion [Unknown]
